FAERS Safety Report 11590654 (Version 2)
Quarter: 2015Q4

REPORT INFORMATION
  Report Type: Report from Study
  Country: US (occurrence: US)
  Receive Date: 20151002
  Receipt Date: 20151022
  Transmission Date: 20160304
  Serious: Yes (Hospitalization)
  Sender: FDA-Public Use
  Company Number: US-GILEAD-2015-0175038

PATIENT
  Age: 90 Year
  Sex: Female

DRUGS (13)
  1. LATANOPROST. [Concomitant]
     Active Substance: LATANOPROST
  2. TRAMADOL. [Concomitant]
     Active Substance: TRAMADOL
  3. WARFARIN [Concomitant]
     Active Substance: WARFARIN
  4. FUROSEMIDE. [Concomitant]
     Active Substance: FUROSEMIDE
  5. SPIRONOLACTONE. [Concomitant]
     Active Substance: SPIRONOLACTONE
  6. COUMADIN [Concomitant]
     Active Substance: WARFARIN SODIUM
  7. TORSEMIDE. [Concomitant]
     Active Substance: TORSEMIDE
  8. TYVASO [Concomitant]
     Active Substance: TREPROSTINIL
  9. ALBUTEROL                          /00139501/ [Concomitant]
     Active Substance: ALBUTEROL
  10. MONTELUKAST [Concomitant]
     Active Substance: MONTELUKAST SODIUM
  11. ALENDRONATE [Concomitant]
     Active Substance: ALENDRONATE SODIUM
  12. AMBRISENTAN [Suspect]
     Active Substance: AMBRISENTAN
     Indication: PULMONARY HYPERTENSION
     Dosage: 10 MG, QD
     Route: 065
     Dates: start: 20130919
  13. SILDENAFIL. [Concomitant]
     Active Substance: SILDENAFIL

REACTIONS (1)
  - Abdominal pain [Not Recovered/Not Resolved]

NARRATIVE: CASE EVENT DATE: 20150928
